FAERS Safety Report 17849411 (Version 1)
Quarter: 2020Q2

REPORT INFORMATION
  Report Type: Spontaneous
  Country: US (occurrence: US)
  Receive Date: 20200601
  Receipt Date: 20200601
  Transmission Date: 20200714
  Serious: Yes (Death, Hospitalization)
  Sender: FDA-Public Use
  Company Number: None

PATIENT
  Age: 51 Year
  Sex: Male

DRUGS (28)
  1. HYDROCO/APAP [Concomitant]
     Active Substance: ACETAMINOPHEN\HYDROCODONE
  2. LEVOFLOXACIN. [Concomitant]
     Active Substance: LEVOFLOXACIN
  3. AMLODIPINE [Concomitant]
     Active Substance: AMLODIPINE BESYLATE
  4. DULOXETINE. [Concomitant]
     Active Substance: DULOXETINE
  5. FENTANYL. [Concomitant]
     Active Substance: FENTANYL
  6. KLOR-CON M10 [Concomitant]
     Active Substance: POTASSIUM CHLORIDE
  7. MEGESTROL AC [Concomitant]
  8. METFORMIN [Concomitant]
     Active Substance: METFORMIN HYDROCHLORIDE
  9. ACYCLOVIR. [Concomitant]
     Active Substance: ACYCLOVIR
  10. MORPHINE SUL [Concomitant]
     Active Substance: MORPHINE SULFATE
  11. VIRTUSSIN AC [Concomitant]
     Active Substance: CODEINE PHOSPHATE\GUAIFENESIN
  12. METHYLPRENID [Concomitant]
  13. PREDNISONE. [Concomitant]
     Active Substance: PREDNISONE
  14. BENZONATATE. [Concomitant]
     Active Substance: BENZONATATE
  15. FUROSEMIDE. [Concomitant]
     Active Substance: FUROSEMIDE
  16. OLANZAPINE. [Concomitant]
     Active Substance: OLANZAPINE
  17. SALINE NASAL [Concomitant]
     Active Substance: SODIUM CHLORIDE
  18. ALBUTEROL NEB [Concomitant]
     Active Substance: ALBUTEROL
  19. MEMANTINE. [Concomitant]
     Active Substance: MEMANTINE
  20. OMEPRAZOLE. [Concomitant]
     Active Substance: OMEPRAZOLE
  21. PROCHLORPER [Concomitant]
  22. VALACYCLOVIR [Concomitant]
     Active Substance: VALACYCLOVIR HYDROCHLORIDE
  23. CAPECITABINE 500MG TAB [Suspect]
     Active Substance: CAPECITABINE
     Indication: PARAESTHESIA
     Dosage: 3 TABS QAM QPM  PO D1-14 THEN 7 D OFF
     Route: 048
     Dates: start: 20200502
  24. DEXAMETHASONE. [Concomitant]
     Active Substance: DEXAMETHASONE
  25. DICLOFENAC [Concomitant]
     Active Substance: DICLOFENAC
  26. LORAZEPAM. [Concomitant]
     Active Substance: LORAZEPAM
  27. ORPHENADRINE [Concomitant]
     Active Substance: ORPHENADRINE
  28. SCOPOLAMINE DIS [Concomitant]

REACTIONS (1)
  - Terminal state [None]

NARRATIVE: CASE EVENT DATE: 20200514
